FAERS Safety Report 24645540 (Version 1)
Quarter: 2024Q4

REPORT INFORMATION
  Report Type: Spontaneous
  Country: US (occurrence: US)
  Receive Date: 20241121
  Receipt Date: 20241121
  Transmission Date: 20250114
  Serious: Yes (Other)
  Sender: GRANULES PHARMACEUTICALS INC
  Company Number: US-GRANULES-US-2024GRALIT00589

PATIENT
  Age: 34 Week

DRUGS (3)
  1. FLUOXETINE [Suspect]
     Active Substance: FLUOXETINE HYDROCHLORIDE
     Indication: Foetal exposure during pregnancy
     Route: 064
  2. CLONAZEPAM [Suspect]
     Active Substance: CLONAZEPAM
     Indication: Foetal exposure during pregnancy
     Route: 064
  3. QUETIAPINE [Suspect]
     Active Substance: QUETIAPINE
     Indication: Foetal exposure during pregnancy
     Route: 064

REACTIONS (2)
  - Decerebrate posture [Unknown]
  - Foetal exposure during pregnancy [Unknown]
